FAERS Safety Report 12969654 (Version 2)
Quarter: 2017Q1

REPORT INFORMATION
  Report Type: Spontaneous
  Country: US (occurrence: US)
  Receive Date: 20161123
  Receipt Date: 20170208
  Transmission Date: 20170428
  Serious: Yes (Other)
  Sender: FDA-Public Use
  Company Number: US-TEVA-714733USA

PATIENT
  Age: 49 Year
  Sex: Male

DRUGS (3)
  1. HYDROMORPHONE [Concomitant]
     Active Substance: HYDROMORPHONE
  2. FENTORA [Suspect]
     Active Substance: FENTANYL CITRATE
     Route: 002
     Dates: end: 201612
  3. FENTORA [Suspect]
     Active Substance: FENTANYL CITRATE
     Indication: HEPATIC PAIN
     Route: 002
     Dates: end: 201612

REACTIONS (5)
  - Hepatocellular carcinoma [Not Recovered/Not Resolved]
  - Mass [Recovered/Resolved]
  - Cough [Recovering/Resolving]
  - Pain [Not Recovered/Not Resolved]
  - Therapeutic response unexpected [Unknown]

NARRATIVE: CASE EVENT DATE: 201612
